FAERS Safety Report 5254092-0 (Version None)
Quarter: 2007Q1

REPORT INFORMATION
  Report Type: 
  Country: None (occurrence: None)
  Receive Date: 20070302
  Receipt Date: 20070213
  Transmission Date: 20070707
  Serious: Yes (Hospitalization, Other)
  Sender: FDA-Public Use
  Company Number: PHEH2007US02040

PATIENT
  Age: 50 Year
  Sex: Female

DRUGS (8)
  1. ZOLEDRONIC ACID [Suspect]
  2. GEMZAR [Suspect]
     Dosage: 800 MG/M2 ON DAY 1,8  AND 15 Q28 DAYS
     Dates: start: 20060915, end: 20061020
  3. ANTIHYPERTENSIVES [Concomitant]
  4. DARBEPOETIN ALFA [Concomitant]
  5. ANASTROZOLE [Concomitant]
  6. PALONOSETRON [Concomitant]
  7. DEXAMETHASONE SODIUM PHOSPHATE [Concomitant]
  8. GOSERELIN [Concomitant]

REACTIONS (34)
  - ASTHENIA [None]
  - BACK PAIN [None]
  - BIOPSY KIDNEY ABNORMAL [None]
  - BLOOD CREATININE INCREASED [None]
  - BLOOD UREA INCREASED [None]
  - CARDIAC TAMPONADE [None]
  - CHOLELITHIASIS [None]
  - COUGH [None]
  - CREATININE RENAL CLEARANCE DECREASED [None]
  - DECREASED APPETITE [None]
  - DYSPNOEA [None]
  - FEELING ABNORMAL [None]
  - FLUID OVERLOAD [None]
  - HAEMATOCRIT DECREASED [None]
  - HAEMOGLOBIN DECREASED [None]
  - HEADACHE [None]
  - HYPOTENSION [None]
  - MITRAL VALVE INCOMPETENCE [None]
  - NAUSEA [None]
  - OEDEMA [None]
  - OLIGURIA [None]
  - PERICARDIAL EFFUSION [None]
  - PERICARDIAL RUB [None]
  - PLATELET COUNT DECREASED [None]
  - PLEURAL EFFUSION [None]
  - PYREXIA [None]
  - RENAL FAILURE [None]
  - RENAL TUBULAR NECROSIS [None]
  - RIGHT VENTRICULAR FAILURE [None]
  - TACHYCARDIA [None]
  - THORACOTOMY [None]
  - THROMBOTIC MICROANGIOPATHY [None]
  - TRICUSPID VALVE INCOMPETENCE [None]
  - VOMITING [None]
